FAERS Safety Report 6642091-3 (Version None)
Quarter: 2010Q1

REPORT INFORMATION
  Report Type: 
  Country: None (occurrence: None)
  Receive Date: 20100319
  Receipt Date: 20100302
  Transmission Date: 20100710
  Serious: Yes (Hospitalization)
  Sender: FDA-Public Use
  Company Number: IT-BAYER-201018299GPV

PATIENT
  Age: 51 Year
  Sex: Male

DRUGS (25)
  1. CAMPATH [Suspect]
     Indication: ANGIOIMMUNOBLASTIC T-CELL LYMPHOMA
     Dosage: 2 CYCLES C-CHOP, ON DAY 1 EVERY 3 WEEKS
     Route: 058
     Dates: start: 20090707
  2. FLUDARABINE [Suspect]
     Indication: STEM CELL TRANSPLANT
     Dosage: ON DAYS -4 AND -3 PRE-TRANSPLANT
     Dates: start: 20091101, end: 20091101
  3. PREDNISONE [Suspect]
     Indication: ANGIOIMMUNOBLASTIC T-CELL LYMPHOMA
     Dosage: DAYS 1-5 PER C-CHOP CYCLE EVERY 3 WEEKS
     Route: 048
     Dates: start: 20090707
  4. DOXORUBICIN [Suspect]
     Indication: ANGIOIMMUNOBLASTIC T-CELL LYMPHOMA
     Dosage: 2 C-CHOP CYCLES, ON DAY 1 EVERY 3 WEEKS
  5. VINCRISTINE [Suspect]
     Indication: ANGIOIMMUNOBLASTIC T-CELL LYMPHOMA
     Dosage: 2 C-CHOP CYCLES, ON DAY 1 EVERY 3 WEEKS
  6. CYCLOPHOSPHAMIDE [Suspect]
     Indication: ANGIOIMMUNOBLASTIC T-CELL LYMPHOMA
     Dosage: 2 CYCLES AS PART OF HYPER-C-HIDAM
  7. CYCLOPHOSPHAMIDE [Suspect]
     Dosage: ON DAYS -4 AND -3 PRE-TRANSPLANT
  8. CYCLOPHOSPHAMIDE [Suspect]
     Dosage: 2 C-CHOP CYCLES, ON DAY 1 EVERY 3 WEEKS
     Dates: start: 20090707
  9. METHOTREXATE [Suspect]
     Indication: ANGIOIMMUNOBLASTIC T-CELL LYMPHOMA
     Dosage: AS USED: 12.5 MG
     Route: 037
     Dates: end: 20100222
  10. METHOTREXATE [Suspect]
     Dosage: SHORT COURSE FOR POST-TRANSPLANT GVHD PROPHYLAXIS
     Dates: start: 20091101
  11. METHOTREXATE [Suspect]
     Dosage: 2 APPLICATIONS EVERY 3 WEEKS
     Route: 037
     Dates: start: 20090707
  12. METHOTREXATE [Suspect]
     Dosage: 2 CYCLES AS PART OF HYPER-C-HIDAM
  13. ARA-C [Suspect]
     Indication: ANGIOIMMUNOBLASTIC T-CELL LYMPHOMA
     Dosage: TOTAL DAILY DOSE: 40 MG
     Route: 037
     Dates: end: 20100222
  14. ARA-C [Suspect]
     Dosage: 2 APPLICATIONS EVERY 3 WEEKS
     Route: 037
     Dates: start: 20090707
  15. ARA-C [Suspect]
     Dosage: 2 CYCLES AS PART OF HYPER-C-HIDAM
  16. DEXAMETHASONE [Suspect]
     Indication: ANGIOIMMUNOBLASTIC T-CELL LYMPHOMA
     Dosage: 2 APPLICATIONS EVERY 3 WEEKS
     Route: 037
     Dates: start: 20090707
  17. DEXAMETHASONE [Suspect]
     Dosage: TOTAL DAILY DOSE: 4 MG
     Route: 037
     Dates: end: 20100222
  18. NEUPOGEN [Suspect]
     Indication: ANGIOIMMUNOBLASTIC T-CELL LYMPHOMA
     Dosage: FIRST CYCLE HYPER-C-HIDAM, STARTING FROM DAY +5
  19. NEUPOGEN [Suspect]
     Dosage: SECOND CYCLE HYPER-C-HIDAM STARTING FROM DAY +5 UNTIL STEM CELL HARVEST
  20. THIOTEPA [Suspect]
     Indication: STEM CELL TRANSPLANT
     Dosage: ON DAY -6 PRE-TRANSPLANT
  21. CYCLOSPORINE [Suspect]
     Indication: PROPHYLAXIS AGAINST GRAFT VERSUS HOST DISEASE
  22. DIFLUCAN [Concomitant]
     Indication: INFECTION PROPHYLAXIS
     Route: 048
     Dates: start: 20100129
  23. SANDIMMUNE [Concomitant]
     Indication: PROPHYLAXIS AGAINST GRAFT VERSUS HOST DISEASE
     Dosage: 75+75 MG
     Route: 048
     Dates: start: 20100209
  24. ZELITREX [Concomitant]
     Indication: INFECTION PROPHYLAXIS
     Route: 048
     Dates: start: 20091212
  25. ZEFFIX [Concomitant]
     Indication: INFECTION PROPHYLAXIS
     Route: 048
     Dates: start: 20091212

REACTIONS (2)
  - HEADACHE [None]
  - INTRACRANIAL HYPOTENSION [None]
